FAERS Safety Report 11350547 (Version 2)
Quarter: 2015Q3

REPORT INFORMATION
  Report Type: Spontaneous
  Country: NL (occurrence: NL)
  Receive Date: 20150807
  Receipt Date: 20150813
  Transmission Date: 20151125
  Serious: Yes (Hospitalization, Other)
  Sender: FDA-Public Use
  Company Number: NL-PFIZER INC-2015260887

PATIENT
  Age: 71 Year
  Sex: Female
  Weight: 57 kg

DRUGS (3)
  1. RIVAROXABAN [Interacting]
     Active Substance: RIVAROXABAN
     Indication: ATRIAL FIBRILLATION
     Dosage: 20 MG, 1X/DAY
     Route: 048
     Dates: start: 201501, end: 20150729
  2. VERAPAMIL HCL [Interacting]
     Active Substance: VERAPAMIL HYDROCHLORIDE
     Indication: ATRIAL FIBRILLATION
     Dosage: 120 MG, 1X/DAY
     Route: 048
     Dates: start: 201501, end: 20150729
  3. VENLAFAXINE HCL [Suspect]
     Active Substance: VENLAFAXINE HYDROCHLORIDE
     Indication: DEPRESSION
     Dosage: 75 MG, 1X/DAY
     Route: 048
     Dates: start: 2013

REACTIONS (16)
  - Orthostatic hypotension [Unknown]
  - Haemoglobin decreased [Recovering/Resolving]
  - Melaena [Recovering/Resolving]
  - Electrocardiogram QT prolonged [Unknown]
  - Haematochezia [Unknown]
  - Asthenia [Unknown]
  - Rectal haemorrhage [Unknown]
  - Abdominal distension [Unknown]
  - Drug interaction [Recovering/Resolving]
  - Fatigue [Unknown]
  - Pollakiuria [Unknown]
  - Acute kidney injury [Recovering/Resolving]
  - Weight increased [Unknown]
  - Dizziness [Unknown]
  - Chest pain [Unknown]
  - Dyspnoea exertional [Recovering/Resolving]

NARRATIVE: CASE EVENT DATE: 20150725
